FAERS Safety Report 9951198 (Version 1)
Quarter: 2014Q1

REPORT INFORMATION
  Report Type: Spontaneous
  Country: FR (occurrence: FR)
  Receive Date: 20140304
  Receipt Date: 20140304
  Transmission Date: 20141002
  Serious: Yes (Hospitalization)
  Sender: FDA-Public Use
  Company Number: FR-SA-2014SA022008

PATIENT
  Age: 80 Year
  Sex: Male

DRUGS (6)
  1. LOVENOX [Suspect]
     Indication: PRODUCT USED FOR UNKNOWN INDICATION
     Dosage: FORM:SOLUTION
     Route: 058
     Dates: start: 20131120, end: 20131126
  2. SINTROM [Interacting]
     Indication: PRODUCT USED FOR UNKNOWN INDICATION
     Route: 048
     Dates: start: 20131120, end: 20131127
  3. AUGMENTIN [Concomitant]
     Dates: start: 20131117, end: 20131124
  4. FRAGMIN [Concomitant]
     Dates: start: 20131118, end: 20131120
  5. ALLOPURINOL [Concomitant]
     Route: 048
  6. LERCAN [Concomitant]
     Dosage: 5 MG IN MORNING AND 10 MG IN MIDDAY
     Route: 048

REACTIONS (4)
  - International normalised ratio increased [Recovered/Resolved]
  - Drug interaction [Unknown]
  - Haematoma [Recovered/Resolved]
  - Activated partial thromboplastin time prolonged [Recovered/Resolved]
